FAERS Safety Report 6285308-X (Version None)
Quarter: 2009Q3

REPORT INFORMATION
  Report Type: 
  Country: None (occurrence: None)
  Receive Date: 20090727
  Receipt Date: 20090720
  Transmission Date: 20100115
  Serious: Yes (Hospitalization, Other)
  Sender: FDA-Public Use
  Company Number: US-ROXANE LABORATORIES, INC.-2009-RO-00721RO

PATIENT
  Age: 50 Year
  Sex: Female

DRUGS (13)
  1. LAMOTRIGINE [Suspect]
     Indication: BIPOLAR I DISORDER
     Dosage: 25 MG
  2. LAMOTRIGINE [Suspect]
     Dosage: 25 MG
     Route: 048
  3. LITHIUM CARBONATE [Suspect]
     Dosage: 900 MG
  4. ZOLPIDEM [Suspect]
     Dosage: 10 MG
  5. LEVOTHYROXINE SODIUM [Suspect]
     Dosage: 0.125 MG
  6. DILTIAZEM [Suspect]
     Dosage: 120 MG
  7. CLONAZEPAM [Suspect]
     Dosage: 2.5 MG
  8. RISPERIDONE [Suspect]
     Dosage: 2 MG
  9. OXYCODONE [Suspect]
  10. DIPHENHYDRAMINE HCL [Suspect]
  11. TYLENOL [Suspect]
  12. CEFTRIAXON [Concomitant]
     Indication: EVIDENCE BASED TREATMENT
     Dosage: 2 G
  13. VANCOMYCIN [Concomitant]
     Indication: EVIDENCE BASED TREATMENT
     Dosage: 1500 MG

REACTIONS (9)
  - ALANINE AMINOTRANSFERASE INCREASED [None]
  - ASPARTATE AMINOTRANSFERASE INCREASED [None]
  - BIPOLAR I DISORDER [None]
  - BLOOD ALKALINE PHOSPHATASE INCREASED [None]
  - BLOOD GLUCOSE INCREASED [None]
  - GASTROENTERITIS [None]
  - LEUKOARAIOSIS [None]
  - MENINGITIS ASEPTIC [None]
  - SUICIDAL IDEATION [None]
